FAERS Safety Report 4853063-3 (Version None)
Quarter: 2005Q4

REPORT INFORMATION
  Report Type: 
  Country: None (occurrence: None)
  Receive Date: 20051214
  Receipt Date: 20050427
  Transmission Date: 20060501
  Serious: No
  Sender: FDA-Public Use
  Company Number: 200511309JP

PATIENT
  Age: 59 Year
  Sex: Male
  Weight: 62 kg

DRUGS (5)
  1. ARAVA [Suspect]
     Indication: PROPHYLAXIS
     Dosage: DOSE: 20 MG/2 WEEKS
     Route: 048
     Dates: start: 20040401, end: 20050302
  2. ARAVA [Suspect]
     Indication: RHEUMATOID ARTHRITIS
     Dosage: DOSE: 20 MG/2 WEEKS
     Route: 048
     Dates: start: 20040401, end: 20050302
  3. PREDNISOLONE [Concomitant]
     Indication: RHEUMATOID ARTHRITIS
     Route: 048
     Dates: start: 20050302, end: 20050331
  4. PREDNISOLONE [Concomitant]
     Route: 048
     Dates: start: 20050401
  5. MUCOSTA [Concomitant]
     Indication: GASTRITIS
     Route: 048
     Dates: start: 20050302

REACTIONS (2)
  - ANTINUCLEAR ANTIBODY POSITIVE [None]
  - PLATELET COUNT DECREASED [None]
